FAERS Safety Report 14161190 (Version 1)
Quarter: 2017Q4

REPORT INFORMATION
  Report Type: Spontaneous
  Country: US (occurrence: None)
  Receive Date: 20171104
  Receipt Date: 20171104
  Transmission Date: 20180321
  Serious: No
  Sender: FDA-Public Use
  Company Number: None

PATIENT
  Age: 87 Year
  Sex: Female
  Weight: 83.91 kg

DRUGS (1)
  1. OTEZLA [Suspect]
     Active Substance: APREMILAST
     Indication: DIABETES MELLITUS
     Route: 048
     Dates: start: 20170314

REACTIONS (2)
  - Defaecation urgency [None]
  - Synovial cyst [None]

NARRATIVE: CASE EVENT DATE: 20171003
